FAERS Safety Report 7361422-2 (Version None)
Quarter: 2011Q1

REPORT INFORMATION
  Report Type: 
  Country: None (occurrence: None)
  Receive Date: 20110315
  Receipt Date: 20110315
  Transmission Date: 20110831
  Serious: Yes (Hospitalization, Other)
  Sender: FDA-Public Use
  Company Number: None

PATIENT
  Sex: Female
  Weight: 65.7716 kg

DRUGS (1)
  1. PLAVIX [Suspect]
     Indication: STENT PLACEMENT
     Dosage: DAILY 75MG DAILY
     Dates: start: 20040101

REACTIONS (2)
  - ULCER HAEMORRHAGE [None]
  - POSTMENOPAUSAL HAEMORRHAGE [None]
